FAERS Safety Report 13823684 (Version 1)
Quarter: 2017Q3

REPORT INFORMATION
  Report Type: Spontaneous
  Country: US (occurrence: US)
  Receive Date: 20170802
  Receipt Date: 20170802
  Transmission Date: 20171127
  Serious: No
  Sender: FDA-Public Use
  Company Number: PHEH2017US022563

PATIENT
  Sex: Female

DRUGS (2)
  1. RIVASTIGMINE. [Suspect]
     Active Substance: RIVASTIGMINE
     Indication: PRODUCT USED FOR UNKNOWN INDICATION
     Dosage: UNK
     Route: 065
  2. EXELON PATCH [Suspect]
     Active Substance: RIVASTIGMINE
     Indication: MULTIPLE SCLEROSIS
     Dosage: 9.5 MG, QD PATCH 10 (CM2)
     Route: 062

REACTIONS (4)
  - Confusional state [Unknown]
  - Pain [Unknown]
  - Headache [Unknown]
  - Product use in unapproved indication [Unknown]
